FAERS Safety Report 10920461 (Version 1)
Quarter: 2015Q1

REPORT INFORMATION
  Report Type: Spontaneous
  Country: US (occurrence: None)
  Receive Date: 20150313
  Receipt Date: 20150313
  Transmission Date: 20150721
  Serious: Yes (Other)
  Sender: FDA-Public Use
  Company Number: None

PATIENT
  Age: 77 Year
  Sex: Female
  Weight: 86.18 kg

DRUGS (10)
  1. PHILLIPS CAPLETS (LAXATIVE) [Concomitant]
  2. VALERIAN ROOT [Concomitant]
     Active Substance: VALERIAN
  3. LORATADINE. [Concomitant]
     Active Substance: LORATADINE
  4. LEVOTHYROXINE [Concomitant]
     Active Substance: LEVOTHYROXINE
  5. ABUTEROL [Concomitant]
  6. CIPROFLOXACIN HCL [Suspect]
     Active Substance: CIPROFLOXACIN HYDROCHLORIDE
     Indication: URINARY TRACT INFECTION
     Route: 048
     Dates: start: 20141117, end: 20141120
  7. MULTI-VIT [Concomitant]
     Active Substance: VITAMINS
  8. AZO [Concomitant]
     Active Substance: PHENAZOPYRIDINE HYDROCHLORIDE
  9. FLUTICASONE [Concomitant]
     Active Substance: FLUTICASONE\FLUTICASONE PROPIONATE
  10. CLEAR LUNGS - HERBAL [Concomitant]

REACTIONS (4)
  - Abasia [None]
  - Infection [None]
  - Tendon disorder [None]
  - Dysstasia [None]

NARRATIVE: CASE EVENT DATE: 201409
